FAERS Safety Report 19416279 (Version 1)
Quarter: 2021Q2

REPORT INFORMATION
  Report Type: Spontaneous
  Country: US (occurrence: US)
  Receive Date: 20210615
  Receipt Date: 20210615
  Transmission Date: 20210717
  Serious: No
  Sender: FDA-Public Use
  Company Number: US-ALLERGAN-2100236US

PATIENT
  Sex: Female

DRUGS (1)
  1. KYBELLA [Suspect]
     Active Substance: DEOXYCHOLIC ACID
     Indication: LIPOLYSIS PROCEDURE
     Dosage: UNK, SINGLE
     Route: 058

REACTIONS (5)
  - Drug ineffective for unapproved indication [Unknown]
  - Injection site bruising [Unknown]
  - Off label use [Unknown]
  - Drug ineffective [Unknown]
  - Injection site swelling [Unknown]
